FAERS Safety Report 23110545 (Version 1)
Quarter: 2023Q4

REPORT INFORMATION
  Report Type: Spontaneous
  Country: US (occurrence: US)
  Receive Date: 20231026
  Receipt Date: 20231026
  Transmission Date: 20240110
  Serious: Yes (Hospitalization, Other)
  Sender: FDA-Public Use
  Company Number: US-SUN PHARMACEUTICAL INDUSTRIES LTD-2023R1-414001

PATIENT
  Age: 59 Year
  Sex: Male

DRUGS (1)
  1. CLOZAPINE [Suspect]
     Active Substance: CLOZAPINE
     Indication: Bipolar disorder
     Dosage: UNK
     Route: 065

REACTIONS (3)
  - Therapy cessation [Unknown]
  - Cholinergic rebound syndrome [Recovered/Resolved]
  - Serotonin syndrome [Recovered/Resolved]
